FAERS Safety Report 5658531-2 (Version None)
Quarter: 2008Q1

REPORT INFORMATION
  Report Type: 
  Country: None (occurrence: None)
  Receive Date: 20080310
  Receipt Date: 20070307
  Transmission Date: 20080703
  Serious: No
  Sender: FDA-Public Use
  Company Number: US-BAYER-200710719BCC

PATIENT
  Age: 73 Year
  Sex: Female
  Weight: 82 kg

DRUGS (7)
  1. ALEVE [Suspect]
     Indication: ARTHRALGIA
     Dosage: TOTAL DAILY DOSE: 440 MG  UNIT DOSE: 220 MG
     Route: 048
     Dates: start: 20061101
  2. PRILOSEC [Concomitant]
  3. DICLOFENAC SODIUM [Concomitant]
  4. OXYBUTYNIN CHLORIDE [Concomitant]
  5. BROMOCRIPTIN [Concomitant]
  6. AZMACORT [Concomitant]
  7. FLOVENT [Concomitant]

REACTIONS (2)
  - ABDOMINAL PAIN UPPER [None]
  - DYSPEPSIA [None]
